FAERS Safety Report 10557530 (Version 1)
Quarter: 2014Q4

REPORT INFORMATION
  Report Type: Spontaneous
  Country: US (occurrence: None)
  Receive Date: 20141030
  Receipt Date: 20141030
  Transmission Date: 20150529
  Serious: No
  Sender: FDA-Public Use
  Company Number: None

PATIENT
  Age: 19 Year
  Sex: Female
  Weight: 59 kg

DRUGS (2)
  1. MOMETASONE [Concomitant]
     Active Substance: MOMETASONE
     Dosage: 110MCG
  2. MEDROXYPROGESTERONE [Suspect]
     Active Substance: MEDROXYPROGESTERONE
     Dosage: 150MG?90 DAYS?INTRAMUSCULAR
     Route: 030

REACTIONS (1)
  - Injection site erythema [None]

NARRATIVE: CASE EVENT DATE: 20141029
